FAERS Safety Report 9449603 (Version 1)
Quarter: 2013Q3

REPORT INFORMATION
  Report Type: Spontaneous
  Country: US (occurrence: US)
  Receive Date: 20130809
  Receipt Date: 20130809
  Transmission Date: 20140515
  Serious: No
  Sender: FDA-Public Use
  Company Number: US-PFIZER INC-2013230691

PATIENT
  Age: 47 Year
  Sex: Female
  Weight: 92.97 kg

DRUGS (6)
  1. LYRICA [Suspect]
     Indication: FIBROMYALGIA
     Dosage: 150 MG, 4X/DAY
     Route: 048
     Dates: start: 201202
  2. LYRICA [Suspect]
     Indication: TRIGEMINAL NEURALGIA
     Dosage: 150 MG, 2X/DAY
     Route: 048
     Dates: end: 201305
  3. LYRICA [Suspect]
     Dosage: 75 MG, 1X/DAY
     Route: 048
     Dates: start: 2013
  4. OXYCODONE [Concomitant]
     Indication: TRIGEMINAL NEURALGIA
     Dosage: 50 MG, EVERY 4 HRS
     Route: 048
  5. CYMBALTA [Concomitant]
     Indication: PAIN
     Dosage: 60 MG, 1X/DAY
  6. CYMBALTA [Concomitant]
     Indication: DEPRESSION

REACTIONS (9)
  - Fluid retention [Unknown]
  - Local swelling [Unknown]
  - Joint swelling [Unknown]
  - Weight increased [Unknown]
  - Vitamin D decreased [Unknown]
  - Drug withdrawal syndrome [Recovered/Resolved]
  - Influenza like illness [Recovered/Resolved]
  - Chills [Recovered/Resolved]
  - Night sweats [Recovered/Resolved]
